FAERS Safety Report 9112076 (Version 1)
Quarter: 2013Q1

REPORT INFORMATION
  Report Type: Spontaneous
  Country: US (occurrence: US)
  Receive Date: 20130219
  Receipt Date: 20130219
  Transmission Date: 20140127
  Serious: No
  Sender: FDA-Public Use
  Company Number: US-BRISTOL-MYERS SQUIBB COMPANY-16692253

PATIENT
  Age: 49 Year
  Sex: Female
  Weight: 116.28 kg

DRUGS (1)
  1. ORENCIA [Suspect]
     Indication: RHEUMATOID ARTHRITIS
     Dosage: RESTARTED ON 29FEB12,AGAIN IN MAR2012, APR2012, AND 24MAY2012
     Route: 042
     Dates: start: 20110901, end: 20120524

REACTIONS (2)
  - Headache [Unknown]
  - Treatment noncompliance [Unknown]
